FAERS Safety Report 10070113 (Version 1)
Quarter: 2014Q2

REPORT INFORMATION
  Report Type: Spontaneous
  Country: US (occurrence: US)
  Receive Date: 20140410
  Receipt Date: 20140410
  Transmission Date: 20141212
  Serious: No
  Sender: FDA-Public Use
  Company Number: US-PFIZER INC-2014100273

PATIENT
  Age: 74 Year
  Sex: Female
  Weight: 81.63 kg

DRUGS (4)
  1. ALAVERT [Suspect]
     Indication: HYPERSENSITIVITY
     Dosage: 10 MG, TWO TIMES A DAY
     Route: 048
     Dates: start: 20140407
  2. ALAVERT [Suspect]
     Indication: BRONCHITIS VIRAL
  3. ALAVERT [Suspect]
     Indication: RHINORRHOEA
  4. SYMBICORT [Concomitant]
     Indication: NASOPHARYNGITIS
     Dosage: UNK

REACTIONS (4)
  - Poor quality drug administered [Unknown]
  - Overdose [Unknown]
  - Drug ineffective [Not Recovered/Not Resolved]
  - Product lot number issue [Unknown]
